FAERS Safety Report 7724741-3 (Version None)
Quarter: 2011Q3

REPORT INFORMATION
  Report Type: 
  Country: None (occurrence: None)
  Receive Date: 20110901
  Receipt Date: 20110825
  Transmission Date: 20111222
  Serious: Yes (Other)
  Sender: FDA-Public Use
  Company Number: US-PFIZER INC-2011200274

PATIENT
  Sex: Female

DRUGS (9)
  1. LORAZEPAM [Concomitant]
     Indication: ANXIETY
  2. WELLBUTRIN [Concomitant]
     Indication: DEPRESSION
  3. PERCOCET [Concomitant]
     Indication: INTERVERTEBRAL DISC DEGENERATION
  4. OXYCONTIN [Concomitant]
     Indication: INTERVERTEBRAL DISC DEGENERATION
  5. PROPRANOLOL HCL [Suspect]
     Indication: MIGRAINE
     Dosage: 40 MG, 1X/DAY
     Dates: start: 20110823, end: 20110825
  6. REMERON [Concomitant]
     Indication: DEPRESSION
  7. OXAZEPAM [Concomitant]
     Indication: INTERVERTEBRAL DISC DEGENERATION
     Dosage: UNK
     Dates: start: 20110818
  8. BACLOFEN [Concomitant]
  9. NEXIUM [Concomitant]
     Indication: DYSPEPSIA

REACTIONS (5)
  - LIP SWELLING [None]
  - HEADACHE [None]
  - DYSPNOEA [None]
  - BLOOD PRESSURE INCREASED [None]
  - HEART RATE DECREASED [None]
